FAERS Safety Report 6832456-9 (Version None)
Quarter: 2010Q3

REPORT INFORMATION
  Report Type: 
  Country: None (occurrence: None)
  Receive Date: 20100712
  Receipt Date: 20070310
  Transmission Date: 20110219
  Serious: No
  Sender: FDA-Public Use
  Company Number: US-PFIZER INC-2007020204

PATIENT
  Age: 79 Year
  Sex: Female
  Weight: 40.82 kg

DRUGS (5)
  1. CHANTIX [Suspect]
     Indication: SMOKING CESSATION THERAPY
     Dates: start: 20070201
  2. BENICAR [Concomitant]
  3. FOSAMAX [Concomitant]
  4. PROTONIX [Concomitant]
     Indication: DYSPEPSIA
  5. CRESTOR [Concomitant]

REACTIONS (1)
  - NAUSEA [None]
